FAERS Safety Report 23510407 (Version 7)
Quarter: 2024Q2

REPORT INFORMATION
  Report Type: Spontaneous
  Country: GB (occurrence: GB)
  Receive Date: 20240211
  Receipt Date: 20240608
  Transmission Date: 20240715
  Serious: Yes (Other)
  Sender: FDA-Public Use
  Company Number: GB-ROCHE-3503249

PATIENT
  Age: 69 Year
  Sex: Female

DRUGS (2)
  1. VABYSMO [Suspect]
     Active Substance: FARICIMAB\FARICIMAB-SVOA
     Indication: Neovascular age-related macular degeneration
     Route: 050
  2. VABYSMO [Suspect]
     Active Substance: FARICIMAB\FARICIMAB-SVOA
     Indication: Diabetic retinal oedema

REACTIONS (5)
  - Endophthalmitis [Recovering/Resolving]
  - Retinal detachment [Recovering/Resolving]
  - Retinal occlusive vasculitis [Recovering/Resolving]
  - Eye inflammation [Unknown]
  - Uveitis [Recovering/Resolving]
